FAERS Safety Report 17550872 (Version 1)
Quarter: 2020Q1

REPORT INFORMATION
  Report Type: Other
  Country: GB (occurrence: GB)
  Receive Date: 20200317
  Receipt Date: 20200317
  Transmission Date: 20200409
  Serious: Yes (Disabling, Other)
  Sender: FDA-Public Use
  Company Number: GB-DENTSPLY-2020SCDP000097

PATIENT
  Age: 9 Year
  Sex: Female
  Weight: 30 kg

DRUGS (1)
  1. PRILOCAINE AND LIDOCAINE [Suspect]
     Active Substance: LIDOCAINE\PRILOCAINE
     Indication: BLOOD TEST
     Dosage: 2 GRAM
     Route: 061
     Dates: start: 20200221, end: 20200221

REACTIONS (3)
  - Pallor [Recovered/Resolved]
  - Malaise [Recovered/Resolved]
  - Rash erythematous [Recovered/Resolved]

NARRATIVE: CASE EVENT DATE: 20200221
